FAERS Safety Report 8185500-3 (Version None)
Quarter: 2012Q1

REPORT INFORMATION
  Report Type: 
  Country: None (occurrence: None)
  Receive Date: 20120305
  Receipt Date: 20120227
  Transmission Date: 20120608
  Serious: Yes (Other)
  Sender: FDA-Public Use
  Company Number: US-ROCHE-1012811

PATIENT
  Sex: Male
  Weight: 77.18 kg

DRUGS (2)
  1. ACCUTANE [Suspect]
     Indication: ROSACEA
     Route: 065
     Dates: start: 19800101
  2. ACCUTANE [Suspect]
     Dates: start: 19850101

REACTIONS (9)
  - DEPRESSION [None]
  - INJURY [None]
  - BLOOD TRIGLYCERIDES INCREASED [None]
  - BACK PAIN [None]
  - IRRITABLE BOWEL SYNDROME [None]
  - SLEEP APNOEA SYNDROME [None]
  - BLOOD CHOLESTEROL INCREASED [None]
  - SUICIDAL IDEATION [None]
  - INTERVERTEBRAL DISC DEGENERATION [None]
